FAERS Safety Report 13547246 (Version 2)
Quarter: 2017Q2

REPORT INFORMATION
  Report Type: Report from Study
  Country: US (occurrence: US)
  Receive Date: 20170515
  Receipt Date: 20170525
  Transmission Date: 20170830
  Serious: Yes (Hospitalization)
  Sender: FDA-Public Use
  Company Number: US-ACTELION-A-NJ2016-136608

PATIENT
  Age: 34 Year
  Sex: Male
  Weight: 140.59 kg

DRUGS (2)
  1. VELETRI [Suspect]
     Active Substance: EPOPROSTENOL
     Indication: PULMONARY HYPERTENSION
     Dosage: 36 NG/KG, PER MIN
     Route: 042
     Dates: start: 20140825
  2. OPSUMIT [Suspect]
     Active Substance: MACITENTAN
     Indication: PULMONARY HYPERTENSION
     Dosage: 10 MG, QD
     Route: 048

REACTIONS (15)
  - Fluid overload [Unknown]
  - Carbon dioxide increased [Unknown]
  - Chest discomfort [Unknown]
  - Fluid retention [Recovering/Resolving]
  - Hypoaesthesia [Unknown]
  - Weight increased [Unknown]
  - Complication associated with device [Unknown]
  - Hypoxia [Unknown]
  - Dizziness [Unknown]
  - Flushing [Unknown]
  - Dyspnoea exertional [Unknown]
  - Pallor [Recovering/Resolving]
  - Pain in jaw [Unknown]
  - Pneumonia aspiration [Unknown]
  - Feeling of body temperature change [Unknown]
